FAERS Safety Report 25622941 (Version 2)
Quarter: 2025Q3

REPORT INFORMATION
  Report Type: Spontaneous
  Country: US (occurrence: US)
  Receive Date: 20250730
  Receipt Date: 20250828
  Transmission Date: 20251020
  Serious: Yes (Other)
  Sender: ELI LILLY AND COMPANY
  Company Number: US-ELI_LILLY_AND_COMPANY-US202507028662

PATIENT
  Age: 41 Year
  Sex: Female
  Weight: 76 kg

DRUGS (8)
  1. HUMALOG [Suspect]
     Active Substance: INSULIN LISPRO
     Indication: Type 1 diabetes mellitus
     Route: 058
     Dates: start: 20200101
  2. ROSUVASTATIN [Concomitant]
     Active Substance: ROSUVASTATIN
     Indication: Hyperlipidaemia
     Dosage: 20 MG, DAILY
     Route: 048
     Dates: start: 20240220
  3. IBUPROFEN [Concomitant]
     Active Substance: IBUPROFEN
     Indication: Prophylaxis
     Route: 065
     Dates: start: 2001
  4. LORATADINE [Concomitant]
     Active Substance: LORATADINE
     Indication: Prophylaxis
     Route: 065
     Dates: start: 20240901
  5. VITAMIN D+K [Concomitant]
     Indication: Vitamin D deficiency
     Route: 065
     Dates: start: 20250315
  6. LACOSAMIDE [Concomitant]
     Active Substance: LACOSAMIDE
     Indication: Oscillopsia
     Route: 065
     Dates: start: 20240131
  7. CYCLOBENZAPRINE [Concomitant]
     Active Substance: CYCLOBENZAPRINE
     Indication: Humerus fracture
     Route: 065
     Dates: start: 20250512
  8. OXYCODONE [Concomitant]
     Active Substance: OXYCODONE
     Indication: Humerus fracture
     Route: 065
     Dates: start: 20250512

REACTIONS (1)
  - Hypoglycaemia [Recovered/Resolved]

NARRATIVE: CASE EVENT DATE: 20250718
